FAERS Safety Report 15798569 (Version 1)
Quarter: 2018Q4

REPORT INFORMATION
  Report Type: Spontaneous
  Country: US (occurrence: US)
  Receive Date: 20181213
  Receipt Date: 20181213
  Transmission Date: 20190205
  Serious: Yes (Hospitalization)
  Sender: FDA-Public Use
  Company Number: None

PATIENT
  Age: 67 Year
  Sex: Female

DRUGS (4)
  1. AZATHIOPRINE 50MG TAB [Suspect]
     Active Substance: AZATHIOPRINE
     Indication: RENAL TRANSPLANT
     Route: 048
     Dates: start: 20170908
  2. AZATHIOPRINE 50MG TAB [Suspect]
     Active Substance: AZATHIOPRINE
     Indication: RENAL TRANSPLANT
     Route: 048
     Dates: start: 20170908
  3. TACROLIMUS 1MG CAP [Suspect]
     Active Substance: TACROLIMUS
     Indication: RENAL TRANSPLANT
     Route: 048
     Dates: start: 20150325
  4. PREDNISONE. [Concomitant]
     Active Substance: PREDNISONE

REACTIONS (2)
  - Pelvic fracture [None]
  - Atrial fibrillation [None]

NARRATIVE: CASE EVENT DATE: 201811
